FAERS Safety Report 25671226 (Version 1)
Quarter: 2025Q3

REPORT INFORMATION
  Report Type: Spontaneous
  Country: RU (occurrence: RU)
  Receive Date: 20250812
  Receipt Date: 20250812
  Transmission Date: 20251021
  Serious: Yes (Life-Threatening)
  Sender: FRESENIUS KABI
  Company Number: RU-FreseniusKabi-FK202511095

PATIENT
  Age: 47 Year
  Sex: Male
  Weight: 138 kg

DRUGS (1)
  1. PROPOFOL [Suspect]
     Active Substance: PROPOFOL
     Indication: Benign neoplasm of skin
     Dosage: FOA: INTRAVENOUS EMULSION?ROA: INTRAVENOUS BOLUS?270 MG/MG{CRE}?DOSAGE FREQUENCY: 2H?DURATION OF MP
     Dates: start: 20250121, end: 20250121

REACTIONS (1)
  - Anaphylactic reaction [Not Recovered/Not Resolved]

NARRATIVE: CASE EVENT DATE: 20250121
